FAERS Safety Report 20718331 (Version 1)
Quarter: 2022Q2

REPORT INFORMATION
  Report Type: Spontaneous
  Country: US (occurrence: US)
  Receive Date: 20220418
  Receipt Date: 20220418
  Transmission Date: 20220721
  Serious: Yes (Hospitalization, Other)
  Sender: FDA-Public Use
  Company Number: US-EPICPHARMA-US-2022EPCLIT00225

PATIENT
  Age: 54 Year
  Sex: Male

DRUGS (4)
  1. PHENYTOIN [Suspect]
     Active Substance: PHENYTOIN
     Indication: Seizure
     Route: 065
  2. DULAGLUTIDE [Concomitant]
     Active Substance: DULAGLUTIDE
     Indication: Product used for unknown indication
     Route: 065
  3. SERTRALINE [Concomitant]
     Active Substance: SERTRALINE HYDROCHLORIDE
     Indication: Product used for unknown indication
     Route: 065
  4. ATORVASTATIN [Concomitant]
     Active Substance: ATORVASTATIN
     Indication: Product used for unknown indication
     Route: 065

REACTIONS (1)
  - Idiopathic interstitial pneumonia [Recovered/Resolved]
